FAERS Safety Report 17578788 (Version 11)
Quarter: 2020Q4

REPORT INFORMATION
  Report Type: Report from Study
  Country: PL (occurrence: PL)
  Receive Date: 20200324
  Receipt Date: 20201209
  Transmission Date: 20210113
  Serious: Yes (Death, Life-Threatening, Hospitalization)
  Sender: FDA-Public Use
  Company Number: PL-EXELIXIS-XL18420028341

PATIENT
  Age: 58 Year
  Sex: Male
  Weight: 94.5 kg

DRUGS (13)
  1. ATEZOLIZUMAB. [Suspect]
     Active Substance: ATEZOLIZUMAB
     Indication: HEPATOCELLULAR CARCINOMA
     Dosage: 1200 MG, Q3WEEKS
     Route: 042
     Dates: start: 20191219
  2. TRAMADOL. [Concomitant]
     Active Substance: TRAMADOL
  3. PANTOPRAZOL [Concomitant]
     Active Substance: PANTOPRAZOLE SODIUM
  4. PRESTARIUM [Concomitant]
     Active Substance: PERINDOPRIL
  5. GLUCOPHAGE [Concomitant]
     Active Substance: METFORMIN HYDROCHLORIDE
  6. ATROPIN [Concomitant]
     Active Substance: ATROPINE
  7. SPIRONOL [Concomitant]
     Active Substance: SPIRONOLACTONE
  8. ESPUMISAN [Concomitant]
     Active Substance: DIMETHICONE
  9. KLONOPIN [Concomitant]
     Active Substance: CLONAZEPAM
  10. XL184 [Suspect]
     Active Substance: CABOZANTINIB
     Indication: HEPATOCELLULAR CARCINOMA
     Dosage: 40 MG, QD
     Route: 048
     Dates: start: 20191219
  11. FUROSEMIDE. [Concomitant]
     Active Substance: FUROSEMIDE
  12. ROCEPHIN [Concomitant]
     Active Substance: CEFTRIAXONE SODIUM
  13. PROQUIN [Concomitant]

REACTIONS (4)
  - Malignant neoplasm progression [Fatal]
  - Hyponatraemia [Not Recovered/Not Resolved]
  - Hepatic failure [Recovered/Resolved]
  - Anaemia [Not Recovered/Not Resolved]

NARRATIVE: CASE EVENT DATE: 20200316
